FAERS Safety Report 4396752-X (Version None)
Quarter: 2004Q3

REPORT INFORMATION
  Report Type: 
  Country: None (occurrence: None)
  Receive Date: 20040708
  Receipt Date: 20040625
  Transmission Date: 20050211
  Serious: Yes (Hospitalization)
  Sender: FDA-Public Use
  Company Number: FR-JNJFOC-20040607201

PATIENT
  Age: 82 Year
  Sex: Female

DRUGS (8)
  1. DURAGESIC [Suspect]
     Indication: HEADACHE
     Dosage: 1 DOSE(S), 1 IN 3 DAY, TRANSDERMAL
     Route: 062
  2. TRAMADOL HCL [Suspect]
     Indication: HEADACHE
     Dosage: 100 MG, 1 IN 1 DAY, ORAL
     Route: 048
     Dates: start: 20040310, end: 20040428
  3. EFFERALGAN CODEINE (PANADEINE CO) [Suspect]
     Indication: HEADACHE
     Dosage: 6 DOSE(S), 1 IN 1 DAY, ORAL
     Route: 048
  4. PRAZEPAM [Suspect]
     Indication: ANXIETY
     Dosage: 15 GTT, IN 1 DAY, ORAL
     Route: 048
  5. EXELON [Suspect]
     Indication: DEMENTIA
     Dosage: 2 DOSE(S), 1 IN 1 DAY, ORAL
     Route: 048
     Dates: start: 20040402, end: 20040428
  6. ACUPAN [Concomitant]
  7. STABLON (TIANEPTINE) [Concomitant]
  8. CLINUTREN (TONICS) [Concomitant]

REACTIONS (3)
  - DISEASE PROGRESSION [None]
  - DISORIENTATION [None]
  - DRUG INTERACTION [None]
